FAERS Safety Report 6352540-6 (Version None)
Quarter: 2009Q3

REPORT INFORMATION
  Report Type: 
  Country: None (occurrence: None)
  Receive Date: 20090912
  Receipt Date: 20090622
  Transmission Date: 20100115
  Serious: No
  Sender: FDA-Public Use
  Company Number: US-ABBOTT-08P-163-0441024-00

PATIENT
  Sex: Female

DRUGS (4)
  1. HUMIRA [Suspect]
     Indication: RHEUMATOID ARTHRITIS
     Route: 058
     Dates: start: 20070701, end: 20071101
  2. HUMIRA [Suspect]
     Route: 058
     Dates: start: 20071101
  3. HUMIRA [Suspect]
     Route: 058
     Dates: start: 20070701, end: 20071101
  4. HUMIRA [Suspect]
     Indication: RHEUMATOID ARTHRITIS
     Route: 058
     Dates: start: 20071101

REACTIONS (2)
  - ACCIDENTAL NEEDLE STICK [None]
  - INJECTION SITE PAIN [None]
